FAERS Safety Report 8858136 (Version 1)
Quarter: 2012Q4

REPORT INFORMATION
  Report Type: 
  Country: US (occurrence: US)
  Receive Date: 20121024
  Receipt Date: 20121024
  Transmission Date: 20130627
  Serious: No
  Sender: FDA-Public Use
  Company Number: US-AMGEN-USASP2011065524

PATIENT
  Sex: Female

DRUGS (14)
  1. ENBREL [Suspect]
     Indication: PRODUCT USED FOR UNKNOWN INDICATION
     Dosage: 50 mg, qwk
  2. LOTRISONE [Concomitant]
     Dosage: UNK
  3. VITAMIN B-12 [Concomitant]
     Dosage: 1000 mug, UNK
  4. PRAVASTATIN [Concomitant]
     Dosage: 10 mg, UNK
  5. SYNTHROID [Concomitant]
     Dosage: 112 mug, UNK
  6. RANITIDINE [Concomitant]
     Dosage: 150 mg, UNK
  7. PROZAC [Concomitant]
     Dosage: 10 mg, UNK
  8. NORVASC [Concomitant]
     Dosage: 10 mg, UNK
  9. NAPROSYN /00256201/ [Concomitant]
     Dosage: 250 mg, UNK
  10. MULTIVITAMIN                       /00097801/ [Concomitant]
     Dosage: UNK
  11. CALCIUM + VIT D [Concomitant]
  12. VITAMIN D /00107901/ [Concomitant]
     Dosage: 1000 IU, UNK
  13. OMEGA 3                            /01334101/ [Concomitant]
     Dosage: 1000 mg, UNK
  14. B COMPLEX                          /00212701/ [Concomitant]
     Dosage: UNK

REACTIONS (1)
  - Weight increased [Unknown]
